FAERS Safety Report 11649213 (Version 7)
Quarter: 2016Q2

REPORT INFORMATION
  Report Type: Report from Study
  Country: US (occurrence: US)
  Receive Date: 20151021
  Receipt Date: 20160419
  Transmission Date: 20160815
  Serious: Yes (Hospitalization)
  Sender: FDA-Public Use
  Company Number: US-ACTELION-A-NJ2015-125737

PATIENT
  Age: 66 Year
  Sex: Male

DRUGS (4)
  1. MACITENTAN [Suspect]
     Active Substance: MACITENTAN
     Indication: PULMONARY ARTERIAL HYPERTENSION
     Dosage: 10 MG, QD
     Route: 048
     Dates: start: 20150609
  2. RIOCIGUAT [Concomitant]
     Active Substance: RIOCIGUAT
     Dosage: 1 MG, UNK
  3. NIFEDIPINE. [Concomitant]
     Active Substance: NIFEDIPINE
  4. COUMADIN [Concomitant]
     Active Substance: WARFARIN SODIUM

REACTIONS (20)
  - Speech disorder [Unknown]
  - Oedema peripheral [Unknown]
  - Gastrooesophageal reflux disease [Unknown]
  - Dyspnoea exertional [Unknown]
  - Feeding disorder [Unknown]
  - Fluid overload [Not Recovered/Not Resolved]
  - Weight decreased [Unknown]
  - Fall [Unknown]
  - Transfusion [Unknown]
  - Dysphagia [Unknown]
  - Peripheral swelling [Unknown]
  - Ascites [Unknown]
  - Mass [Unknown]
  - Fatigue [Unknown]
  - Cardiac failure high output [Unknown]
  - Thyroid disorder [Unknown]
  - Haematoma [Unknown]
  - Lymphadenopathy [Unknown]
  - Hyperthyroidism [Unknown]
  - Dyspnoea [Unknown]
